FAERS Safety Report 4841061-5 (Version None)
Quarter: 2005Q4

REPORT INFORMATION
  Report Type: 
  Country: None (occurrence: None)
  Receive Date: 20051130
  Receipt Date: 20050913
  Transmission Date: 20060501
  Serious: No
  Sender: FDA-Public Use
  Company Number: US-BRISTOL-MYERS SQUIBB COMPANY-13109657

PATIENT
  Age: 36 Year
  Sex: Female

DRUGS (11)
  1. ABILIFY [Suspect]
     Indication: BIPOLAR DISORDER
     Route: 048
     Dates: start: 20050610, end: 20050912
  2. RISPERDAL [Concomitant]
     Dates: end: 20050505
  3. NAPROXEN [Concomitant]
  4. SYNTHROID [Concomitant]
  5. AMITRIPTYLINE HCL [Concomitant]
  6. MINOCYCLINE [Concomitant]
  7. PROTONIX [Concomitant]
  8. TYLENOL W/ CODEINE NO. 3 [Concomitant]
  9. ZANAFLEX [Concomitant]
  10. LEXAPRO [Concomitant]
  11. TRAZODONE HCL [Concomitant]

REACTIONS (3)
  - ANAEMIA [None]
  - CONTUSION [None]
  - FATIGUE [None]
